FAERS Safety Report 8227091-4 (Version None)
Quarter: 2012Q1

REPORT INFORMATION
  Report Type: 
  Country: None (occurrence: None)
  Receive Date: 20120322
  Receipt Date: 20111227
  Transmission Date: 20120608
  Serious: Yes (Other)
  Sender: FDA-Public Use
  Company Number: IL-AMGEN-ISRSP2011070063

PATIENT
  Age: 50 Year
  Sex: Female

DRUGS (5)
  1. NEULASTIM [Suspect]
     Indication: PROPHYLAXIS
     Dosage: UNK
     Dates: start: 20111222
  2. HERCEPTIN [Concomitant]
     Indication: BREAST CANCER
     Dosage: UNK
     Dates: start: 20111221
  3. TAXOL [Concomitant]
     Indication: BREAST CANCER
     Dosage: UNK
     Dates: start: 20111221
  4. CARBOPLATIN [Concomitant]
     Indication: BREAST CANCER
     Dosage: UNK
     Dates: start: 20111221
  5. NEUPOGEN [Concomitant]
     Indication: PRODUCT USED FOR UNKNOWN INDICATION

REACTIONS (3)
  - PRURITUS [None]
  - RASH [None]
  - HYPERSENSITIVITY [None]
